FAERS Safety Report 9133797 (Version 1)
Quarter: 2013Q1

REPORT INFORMATION
  Report Type: Spontaneous
  Country: GB (occurrence: GB)
  Receive Date: 20130303
  Receipt Date: 20130303
  Transmission Date: 20140127
  Serious: Yes (Other)
  Sender: FDA-Public Use
  Company Number: GB-TEVA-389059ISR

PATIENT
  Age: 58 Year
  Sex: Female
  Weight: 90.71 kg

DRUGS (6)
  1. LEVOTHYROXINE [Suspect]
     Indication: HYPOTHYROIDISM
     Route: 048
     Dates: start: 201106, end: 201211
  2. VITAMIN D [Concomitant]
  3. MAGNESIUM [Concomitant]
  4. SELENIUM [Concomitant]
  5. VITAMIN B COMPLEX [Concomitant]
  6. FERRITIN [Concomitant]

REACTIONS (5)
  - Arthralgia [Not Recovered/Not Resolved]
  - Weight increased [Not Recovered/Not Resolved]
  - Myalgia [Not Recovered/Not Resolved]
  - Suicidal ideation [Not Recovered/Not Resolved]
  - Feeling abnormal [Not Recovered/Not Resolved]
